FAERS Safety Report 8835671 (Version 2)
Quarter: 2012Q4

REPORT INFORMATION
  Report Type: 
  Country: US (occurrence: US)
  Receive Date: 20121011
  Receipt Date: 20121123
  Transmission Date: 20130627
  Serious: Yes (Hospitalization)
  Sender: FDA-Public Use
  Company Number: US-PFIZER INC-2011032038

PATIENT
  Age: 63 Year
  Sex: Female
  Weight: 58 kg

DRUGS (13)
  1. PREMPRO [Suspect]
     Indication: HORMONE REPLACEMENT THERAPY
     Dosage: 0.3/1.5 mg, 1x/day
     Dates: start: 1995
  2. TRICOR [Concomitant]
     Indication: HIGH CHOLESTEROL
     Dosage: 145 mg, 1x/day
  3. VICODIN [Concomitant]
     Dosage: UNK
  4. SOMA [Concomitant]
     Dosage: UNK
  5. NEXIUM [Concomitant]
     Dosage: UNK
  6. ALLEGRA [Concomitant]
     Dosage: UNK
  7. AVAPRO [Concomitant]
     Dosage: UNK
  8. PLAVIX [Concomitant]
     Dosage: UNK
  9. XANAX [Concomitant]
     Dosage: UNK
  10. DILTIAZEM [Concomitant]
     Dosage: UNK
  11. WELCHOL [Concomitant]
     Dosage: UNK
  12. ZETIA [Concomitant]
     Dosage: UNK
  13. NITRO [Concomitant]
     Dosage: Unk

REACTIONS (1)
  - Stress [Unknown]
